FAERS Safety Report 15728843 (Version 1)
Quarter: 2018Q4

REPORT INFORMATION
  Report Type: Spontaneous
  Country: US (occurrence: US)
  Receive Date: 20181201
  Receipt Date: 20181201
  Transmission Date: 20190205
  Serious: Yes (Hospitalization)
  Sender: FDA-Public Use
  Company Number: None

PATIENT
  Age: 27 Year
  Sex: Male
  Weight: 78.75 kg

DRUGS (7)
  1. RISPERIDONE .5 MG TABLETS [Suspect]
     Active Substance: RISPERIDONE
     Indication: BIPOLAR DISORDER
  2. GEODON [Suspect]
     Active Substance: ZIPRASIDONE HYDROCHLORIDE\ZIPRASIDONE MESYLATE
  3. KLONOPIN [Concomitant]
     Active Substance: CLONAZEPAM
  4. MELATONIN [Concomitant]
     Active Substance: MELATONIN
  5. RISPERIDONE. [Concomitant]
     Active Substance: RISPERIDONE
  6. LORATADINE. [Concomitant]
     Active Substance: LORATADINE
  7. ZOLOFT [Concomitant]
     Active Substance: SERTRALINE HYDROCHLORIDE

REACTIONS (23)
  - Amnesia [None]
  - Mental impairment [None]
  - Tachyphrenia [None]
  - Panic attack [None]
  - Toothache [None]
  - Dental discomfort [None]
  - Tension headache [None]
  - Nasal mucosal disorder [None]
  - Pain [None]
  - Drug withdrawal syndrome [None]
  - Insomnia [None]
  - Nasal congestion [None]
  - Photophobia [None]
  - Cold-stimulus headache [None]
  - Vision blurred [None]
  - Presyncope [None]
  - Nasal inflammation [None]
  - Restlessness [None]
  - Dyspnoea [None]
  - Gynaecomastia [None]
  - Blepharospasm [None]
  - Head discomfort [None]
  - Dizziness [None]

NARRATIVE: CASE EVENT DATE: 20181126
